FAERS Safety Report 8089836-6 (Version None)
Quarter: 2012Q1

REPORT INFORMATION
  Report Type: 
  Country: None (occurrence: None)
  Receive Date: 20120128
  Receipt Date: 20110620
  Transmission Date: 20120608
  Serious: No
  Sender: FDA-Public Use
  Company Number: US-ABBOTT-11P-163-0733970-00

PATIENT
  Age: 53 Year
  Sex: Female

DRUGS (6)
  1. PENTASA [Concomitant]
     Indication: CROHN'S DISEASE
  2. HUMIRA [Suspect]
     Dosage: 2 PENS
  3. MULTIVITAMIN [Concomitant]
     Indication: PRODUCT USED FOR UNKNOWN INDICATION
     Dosage: OVER THE COUNTER, SUPPLEMENT
  4. MSM [Concomitant]
     Indication: ARTHROPATHY
     Dosage: OVER THE COUNTER, SUPPLEMENT
  5. HUMIRA [Suspect]
     Indication: CROHN'S DISEASE
     Dosage: 4 PENS
     Dates: start: 20110606, end: 20110606
  6. FISH OIL [Concomitant]
     Indication: ARTHROPATHY
     Dosage: OVER THE COUNTER, SUPPLEMENT

REACTIONS (1)
  - WEIGHT INCREASED [None]
